FAERS Safety Report 8731700 (Version 2)
Quarter: 2012Q4

REPORT INFORMATION
  Report Type: Report from Study
  Country: NL (occurrence: NL)
  Receive Date: 20120820
  Receipt Date: 20121017
  Transmission Date: 20130627
  Serious: Yes (Hospitalization, Other)
  Sender: FDA-Public Use
  Company Number: NL-PFIZER INC-2012197427

PATIENT
  Age: 52 Year
  Sex: Male
  Weight: 82.1 kg

DRUGS (7)
  1. GENOTROPIN [Suspect]
     Indication: HYPOPITUITARISM
     Dosage: 0.3 mg, 1x/day, 7inj/wk
     Route: 058
     Dates: start: 20020102
  2. GENOTROPIN [Suspect]
     Dosage: 0.4 mg, 7/WK
     Route: 058
     Dates: start: 20060331
  3. ANDROGEL [Concomitant]
     Indication: BLOOD LUTEINISING HORMONE DECREASED
     Dosage: UNK
     Dates: start: 20051010
  4. ANDROGEL [Concomitant]
     Indication: BLOOD FOLLICLE STIMULATING HORMONE DECREASED
  5. ANDROGEL [Concomitant]
     Indication: HYPOGONADISM MALE
  6. LEVOTHYROXINE [Concomitant]
     Indication: BLOOD THYROID STIMULATING HORMONE DECREASED
     Dosage: UNK
     Dates: start: 19960115
  7. LEVOTHYROXINE [Concomitant]
     Indication: PRIMARY HYPOTHYROIDISM

REACTIONS (1)
  - Urinary retention [Recovered/Resolved]
